FAERS Safety Report 22005930 (Version 2)
Quarter: 2023Q1

REPORT INFORMATION
  Report Type: Spontaneous
  Country: US (occurrence: US)
  Receive Date: 20230217
  Receipt Date: 20230313
  Transmission Date: 20230418
  Serious: Yes (Other)
  Sender: FDA-Public Use
  Company Number: US-BAYER-2023P010009

PATIENT
  Age: 23 Year
  Sex: Male

DRUGS (2)
  1. KOVALTRY [Suspect]
     Active Substance: ANTIHEMOPHILIC FACTOR, HUMAN RECOMBINANT
     Dosage: 3000 OR 6000 UNITS (+/_10%)
  2. KOVALTRY [Suspect]
     Active Substance: ANTIHEMOPHILIC FACTOR, HUMAN RECOMBINANT
     Dosage: 1 DF, FOR THE BACK BLEED TREATMENT

REACTIONS (3)
  - Haemarthrosis [None]
  - Haemorrhage [Recovered/Resolved]
  - Back pain [None]

NARRATIVE: CASE EVENT DATE: 20230301
